FAERS Safety Report 24546878 (Version 1)
Quarter: 2024Q4

REPORT INFORMATION
  Report Type: Spontaneous
  Country: US (occurrence: US)
  Receive Date: 20241024
  Receipt Date: 20241024
  Transmission Date: 20250115
  Serious: No
  Sender: JOHNSON AND JOHNSON
  Company Number: US-JNJFOC-20241004407

PATIENT
  Age: 47 Year
  Sex: Female

DRUGS (1)
  1. SIMPONI [Suspect]
     Active Substance: GOLIMUMAB
     Indication: Psoriatic arthropathy
     Route: 058
     Dates: start: 202408

REACTIONS (5)
  - Wrong technique in product usage process [Unknown]
  - Device use issue [Unknown]
  - Injection site rash [Unknown]
  - Injection site swelling [Unknown]
  - Pain [Unknown]

NARRATIVE: CASE EVENT DATE: 20240930
